FAERS Safety Report 9054606 (Version 1)
Quarter: 2013Q1

REPORT INFORMATION
  Report Type: Spontaneous
  Country: US (occurrence: US)
  Receive Date: 20130208
  Receipt Date: 20130208
  Transmission Date: 20140127
  Serious: No
  Sender: FDA-Public Use
  Company Number: US-PFIZER INC-2013011136

PATIENT
  Age: 68 Year
  Sex: Male
  Weight: 113.38 kg

DRUGS (2)
  1. VIAGRA [Suspect]
     Indication: ERECTILE DYSFUNCTION
     Dosage: 2 X 50MG, AS NEEDED
     Route: 048
     Dates: start: 2010, end: 2010
  2. NITROGLYCERIN [Concomitant]
     Indication: ANGINA PECTORIS
     Dosage: UNK,1X/DAY
     Route: 062
     Dates: start: 1996

REACTIONS (3)
  - Off label use [Unknown]
  - Drug dispensing error [Unknown]
  - Drug ineffective [Unknown]
